FAERS Safety Report 7975315-0 (Version None)
Quarter: 2011Q4

REPORT INFORMATION
  Report Type: 
  Country: None (occurrence: None)
  Receive Date: 20111213
  Receipt Date: 20110926
  Transmission Date: 20120403
  Serious: No
  Sender: FDA-Public Use
  Company Number: US-AMGEN-USASP2011049479

PATIENT
  Age: 77 Year
  Sex: Female

DRUGS (2)
  1. TRAMADOL HCL [Concomitant]
     Dosage: 2 MG, QWK
  2. ENBREL [Suspect]
     Indication: RHEUMATOID ARTHRITIS
     Dosage: 25 MG, 2 TIMES/WK
     Dates: start: 19960101

REACTIONS (1)
  - WEIGHT DECREASED [None]
